FAERS Safety Report 5289100-4 (Version None)
Quarter: 2007Q1

REPORT INFORMATION
  Report Type: 
  Country: None (occurrence: None)
  Receive Date: 20070124
  Receipt Date: 20060602
  Transmission Date: 20070707
  Serious: Yes (Hospitalization)
  Sender: FDA-Public Use
  Company Number: US200606001034

PATIENT
  Age: 49 Year
  Sex: Male

DRUGS (4)
  1. FORTEO [Suspect]
     Indication: OSTEOPOROSIS
     Dates: start: 20060522
  2. FORTEO [Concomitant]
  3. OSCAL (CALCIUM CARBONATE) [Concomitant]
  4. FOSAMAX [Concomitant]

REACTIONS (1)
  - PNEUMONIA [None]
